FAERS Safety Report 6172189-8 (Version None)
Quarter: 2009Q2

REPORT INFORMATION
  Report Type: 
  Country: None (occurrence: None)
  Receive Date: 20090429
  Receipt Date: 20081022
  Transmission Date: 20091009
  Serious: No
  Sender: FDA-Public Use
  Company Number: A0753061A

PATIENT
  Age: 24 Year
  Sex: Female

DRUGS (4)
  1. ZOFRAN [Suspect]
     Dosage: 4MG PER DAY
     Route: 048
     Dates: start: 20080501
  2. ZOFRAN [Suspect]
     Indication: NAUSEA
     Route: 042
  3. SEIZURE MEDICATION [Concomitant]
  4. VITAMINS [Concomitant]

REACTIONS (2)
  - DRUG EXPOSURE DURING PREGNANCY [None]
  - OFF LABEL USE [None]
